FAERS Safety Report 5565393-0 (Version None)
Quarter: 2007Q4

REPORT INFORMATION
  Report Type: 
  Country: None (occurrence: None)
  Receive Date: 20071218
  Receipt Date: 20071212
  Transmission Date: 20080405
  Serious: Yes (Hospitalization, Other)
  Sender: FDA-Public Use
  Company Number: US-PFIZER INC-2005100252

PATIENT
  Sex: Female
  Weight: 97.1 kg

DRUGS (4)
  1. CELEBREX [Suspect]
     Indication: ARTHRITIS
     Route: 048
     Dates: start: 19990412, end: 20020604
  2. DIOVAN [Concomitant]
  3. ULTRAM [Concomitant]
  4. ACETYLSALICYLIC ACID SRT [Concomitant]

REACTIONS (2)
  - ACUTE MYOCARDIAL INFARCTION [None]
  - CARDIOVASCULAR DISORDER [None]
